FAERS Safety Report 16937838 (Version 1)
Quarter: 2019Q4

REPORT INFORMATION
  Report Type: Spontaneous
  Country: US (occurrence: US)
  Receive Date: 20191019
  Receipt Date: 20191019
  Transmission Date: 20200122
  Serious: No
  Sender: FDA-Public Use
  Company Number: US-GLENMARK PHARMACEUTICALS-2019GMK043005

PATIENT

DRUGS (1)
  1. CLOBETASOL PROPIONATE SPRAY, 0.05% [Suspect]
     Active Substance: CLOBETASOL PROPIONATE
     Indication: PSORIASIS
     Dosage: UNK, (3 TIMES PER WEEK; 2 TO 3 TIMES PER DAY)
     Route: 061
     Dates: end: 20190828

REACTIONS (4)
  - Condition aggravated [Unknown]
  - Product use issue [Unknown]
  - Alopecia [Recovered/Resolved]
  - Psoriasis [Unknown]
